FAERS Safety Report 9643288 (Version 1)
Quarter: 2013Q4

REPORT INFORMATION
  Report Type: Spontaneous
  Country: US (occurrence: None)
  Receive Date: 20131023
  Receipt Date: 20131023
  Transmission Date: 20140711
  Serious: Yes (Hospitalization)
  Sender: FDA-Public Use
  Company Number: 1959750

PATIENT
  Age: 52 Year
  Sex: Male

DRUGS (4)
  1. HEPARIN SODIIUM [Suspect]
     Indication: ATRIAL FIBRILLATION
     Route: 042
  2. FUROSEMIDE [Concomitant]
  3. METOPROLOL [Concomitant]
  4. METHIMAZOLE [Concomitant]

REACTIONS (7)
  - Hyperkalaemia [None]
  - International normalised ratio [None]
  - International normalised ratio increased [None]
  - Transaminases increased [None]
  - Hyperbilirubinaemia [None]
  - Hepatic function abnormal [None]
  - Hypoaldosteronism [None]
